FAERS Safety Report 19127862 (Version 1)
Quarter: 2021Q2

REPORT INFORMATION
  Report Type: Spontaneous
  Country: US (occurrence: US)
  Receive Date: 20210413
  Receipt Date: 20210413
  Transmission Date: 20210717
  Serious: Yes (Hospitalization)
  Sender: FDA-Public Use
  Company Number: None

PATIENT
  Age: 65 Year
  Sex: Female

DRUGS (4)
  1. ODANSETRON [Concomitant]
     Active Substance: ONDANSETRON
  2. FLOVENT HFA AER [Concomitant]
  3. GENOTROPIN [Suspect]
     Active Substance: SOMATROPIN
     Indication: POSTOPERATIVE HYPOPITUITARISM
     Route: 058
     Dates: start: 20150731
  4. ARMOUR THYRO [Concomitant]

REACTIONS (2)
  - Therapy interrupted [None]
  - Surgery [None]

NARRATIVE: CASE EVENT DATE: 20210323
